FAERS Safety Report 16520959 (Version 1)
Quarter: 2019Q3

REPORT INFORMATION
  Report Type: Spontaneous
  Country: CA (occurrence: CA)
  Receive Date: 20190702
  Receipt Date: 20190702
  Transmission Date: 20191004
  Serious: Yes (Other)
  Sender: FDA-Public Use
  Company Number: CA-TEVA-2019-CA-1071496

PATIENT
  Age: 71 Year
  Sex: Female

DRUGS (4)
  1. GABAPENTIN. [Suspect]
     Active Substance: GABAPENTIN
     Indication: NEUROPATHY PERIPHERAL
     Route: 065
  2. GABAPENTIN. [Suspect]
     Active Substance: GABAPENTIN
     Indication: NEURALGIA
  3. GABAPENTIN. [Suspect]
     Active Substance: GABAPENTIN
     Indication: NERVE INJURY
  4. ATIVAN [Suspect]
     Active Substance: LORAZEPAM
     Indication: INSOMNIA
     Dosage: 1 MILLIGRAM DAILY;
     Route: 065

REACTIONS (15)
  - Abdominal discomfort [Unknown]
  - Heart rate decreased [Unknown]
  - Depressed mood [Unknown]
  - Joint swelling [Unknown]
  - Peripheral swelling [Unknown]
  - Rheumatoid arthritis [Unknown]
  - Cough [Unknown]
  - Feeling abnormal [Unknown]
  - Loss of personal independence in daily activities [Unknown]
  - Sinus pain [Unknown]
  - Drug ineffective for unapproved indication [Unknown]
  - Fatigue [Unknown]
  - Malaise [Unknown]
  - Musculoskeletal stiffness [Unknown]
  - Condition aggravated [Unknown]
